FAERS Safety Report 11253124 (Version 1)
Quarter: 2015Q3

REPORT INFORMATION
  Report Type: Spontaneous
  Country: IT (occurrence: None)
  Receive Date: 20150707
  Receipt Date: 20150707
  Transmission Date: 20151125
  Serious: Yes (Other)
  Sender: FDA-Public Use
  Company Number: 2015HINLIT0531

PATIENT
  Sex: Female

DRUGS (1)
  1. LINEZOLID (LINEZOLID) UNKNOWN [Suspect]
     Active Substance: LINEZOLID
     Indication: PNEUMONIA
     Dosage: DURATION 10 DAYS?600 MG, BID, UNKNOWN

REACTIONS (2)
  - Rhabdomyolysis [None]
  - Thrombocytopenia [None]
